FAERS Safety Report 6612642 (Version 5)
Quarter: 2020Q3

REPORT INFORMATION
  Report Type: Report from Study
  Country: CA (occurrence: CA)
  Receive Date: 20080411
  Receipt Date: 20080603
  Transmission Date: 20201105
  Serious: Yes (Other)
  Sender: FDA-Public Use
  Company Number: CA-JNJFOC-20080402874

PATIENT
  Age: 0 Year
  Sex: Female

DRUGS (16)
  1. ZIDOVUDINE. [Concomitant]
     Active Substance: ZIDOVUDINE
     Indication: MATERNAL EXPOSURE DURING PREGNANCY
     Route: 064
  2. FOSINOPRIL SODIUM. [Concomitant]
     Active Substance: FOSINOPRIL SODIUM
     Indication: MATERNAL EXPOSURE DURING PREGNANCY
     Route: 064
  3. TENOFOVIR [Concomitant]
     Active Substance: TENOFOVIR
     Indication: MATERNAL EXPOSURE DURING PREGNANCY
     Route: 064
  4. CEFTRIAXONE. [Concomitant]
     Active Substance: CEFTRIAXONE
  5. TRIZIVIR [Concomitant]
     Active Substance: ABACAVIR SULFATE\LAMIVUDINE\ZIDOVUDINE
     Indication: MATERNAL EXPOSURE DURING PREGNANCY
     Route: 064
  6. AZITHROMYCIN ANHYDROUS. [Concomitant]
     Active Substance: AZITHROMYCIN ANHYDROUS
  7. CEFOTAXIME [Concomitant]
     Active Substance: CEFOTAXIME SODIUM
  8. INTELENCE [Suspect]
     Active Substance: ETRAVIRINE
     Indication: MATERNAL EXPOSURE DURING PREGNANCY
     Dosage: THERAPY RECEIVED FOR ONE WEEK
     Route: 064
  9. AMLODIPINE [Concomitant]
     Active Substance: AMLODIPINE BESYLATE
     Indication: MATERNAL EXPOSURE DURING PREGNANCY
     Route: 064
  10. RITONAVIR. [Suspect]
     Active Substance: RITONAVIR
     Indication: MATERNAL EXPOSURE DURING PREGNANCY
     Dosage: THERAPY RECEIVED FOR ONE WEEK
     Route: 064
  11. TENOFOVIR [Concomitant]
     Active Substance: TENOFOVIR
     Route: 064
  12. DARUNAVIR [Suspect]
     Active Substance: DARUNAVIR
     Route: 064
  13. DARUNAVIR [Suspect]
     Active Substance: DARUNAVIR
     Indication: MATERNAL EXPOSURE DURING PREGNANCY
     Dosage: THERAPY RECEIVED FOR ONE WEEK
     Route: 064
  14. INTELENCE [Suspect]
     Active Substance: ETRAVIRINE
     Route: 064
  15. RITONAVIR. [Suspect]
     Active Substance: RITONAVIR
     Route: 064
  16. TRIZIVIR [Concomitant]
     Active Substance: ABACAVIR SULFATE\LAMIVUDINE\ZIDOVUDINE
     Route: 064

REACTIONS (2)
  - Maternal death affecting foetus [None]
  - 17-hydroxyprogesterone increased [Recovered/Resolved]

NARRATIVE: CASE EVENT DATE: 20080101
